FAERS Safety Report 24142473 (Version 3)
Quarter: 2025Q1

REPORT INFORMATION
  Report Type: Report from Study
  Country: CA (occurrence: CA)
  Receive Date: 20240726
  Receipt Date: 20250107
  Transmission Date: 20250409
  Serious: Yes (Other)
  Sender: ASTELLAS
  Company Number: CA-ASTELLAS-2024US017659

PATIENT
  Age: 42 Year
  Sex: Female

DRUGS (6)
  1. TACROLIMUS [Suspect]
     Active Substance: TACROLIMUS
     Indication: Erythema
     Route: 065
     Dates: start: 2023
  2. TACROLIMUS [Suspect]
     Active Substance: TACROLIMUS
     Indication: Eczema
     Route: 065
  3. DUPIXENT [Suspect]
     Active Substance: DUPILUMAB
     Indication: Dermatitis atopic
     Route: 058
     Dates: start: 20230630
  4. DUPIXENT [Suspect]
     Active Substance: DUPILUMAB
     Dosage: 300 MG EVERY OTHER WEEK (QOW)
     Route: 058
     Dates: start: 20230714
  5. DUPIXENT [Suspect]
     Active Substance: DUPILUMAB
     Route: 058
     Dates: start: 20230908
  6. DUPIXENT [Suspect]
     Active Substance: DUPILUMAB
     Route: 058
     Dates: start: 20230919

REACTIONS (17)
  - Craniofacial fracture [Recovering/Resolving]
  - Syncope [Recovered/Resolved]
  - Loss of consciousness [Recovered/Resolved]
  - Application site pain [Not Recovered/Not Resolved]
  - Back pain [Recovering/Resolving]
  - Erythema [Not Recovered/Not Resolved]
  - Eczema nummular [Not Recovered/Not Resolved]
  - Stress [Unknown]
  - Post procedural complication [Unknown]
  - Anxiety [Unknown]
  - Migraine [Recovered/Resolved]
  - Fatigue [Recovered/Resolved]
  - Influenza like illness [Not Recovered/Not Resolved]
  - Influenza [Recovering/Resolving]
  - Contusion [Recovering/Resolving]
  - Inappropriate schedule of product administration [Unknown]
  - Off label use [Unknown]

NARRATIVE: CASE EVENT DATE: 20230101
